FAERS Safety Report 9697386 (Version 1)
Quarter: 2013Q4

REPORT INFORMATION
  Report Type: Spontaneous
  Country: US (occurrence: None)
  Receive Date: 20131119
  Receipt Date: 20131119
  Transmission Date: 20140711
  Serious: Yes (Life-Threatening, Hospitalization)
  Sender: FDA-Public Use
  Company Number: None

PATIENT
  Age: 69 Year
  Sex: Female
  Weight: 53 kg

DRUGS (10)
  1. WARFARIN [Suspect]
     Indication: CEREBROVASCULAR ACCIDENT
     Route: 048
  2. WARFARIN [Suspect]
     Indication: ATRIAL FIBRILLATION
     Route: 048
  3. CYMBALTA [Concomitant]
     Dosage: 1 TABLET QD ORAL
     Route: 048
  4. JANUVIA [Concomitant]
  5. SENNA [Concomitant]
  6. ASPIRIN [Concomitant]
  7. LISINOPRIL [Concomitant]
  8. METOPROLOL [Concomitant]
  9. ODANSETRON [Concomitant]
  10. NOVOLOG [Concomitant]

REACTIONS (9)
  - Rectal haemorrhage [None]
  - Hyperkalaemia [None]
  - International normalised ratio increased [None]
  - Diverticulum [None]
  - Polyp [None]
  - Rectal ulcer [None]
  - Faecaloma [None]
  - Thrombocytopenia [None]
  - Vitamin D deficiency [None]
